FAERS Safety Report 9408657 (Version 2)
Quarter: 2013Q3

REPORT INFORMATION
  Report Type: Spontaneous
  Country: US (occurrence: None)
  Receive Date: 20130716
  Receipt Date: 20130726
  Transmission Date: 20140515
  Serious: Yes (Other)
  Sender: FDA-Public Use
  Company Number: 2013-1157

PATIENT
  Age: 82 Year
  Sex: Female

DRUGS (3)
  1. KYPROLIS (CARFILZOMIB) (INJECTION FOR INFUSION) (CARFILZOMIB) [Suspect]
     Indication: PLASMA CELL MYELOMA
     Route: 042
     Dates: start: 20130311
  2. ASPIRIN (ACETYLSALICYLIC ACID) (ACETYLSALICYCLIC ACID) [Concomitant]
  3. XARELTO (RIVAROXABAN) (RIVAROXABAN) [Concomitant]

REACTIONS (6)
  - Fatigue [None]
  - Weight decreased [None]
  - Malaise [None]
  - Pneumonia [None]
  - Pulmonary thrombosis [None]
  - Myocardial infarction [None]
